FAERS Safety Report 24167084 (Version 1)
Quarter: 2024Q3

REPORT INFORMATION
  Report Type: Spontaneous
  Country: CN (occurrence: CN)
  Receive Date: 20240802
  Receipt Date: 20240802
  Transmission Date: 20241017
  Serious: Yes (Hospitalization)
  Sender: EMD SERONO INC
  Company Number: CN-Merck Healthcare KGaA-2024041172

PATIENT
  Age: 49 Year
  Sex: Female
  Weight: 62 kg

DRUGS (3)
  1. GLUCOPHAGE [Suspect]
     Active Substance: METFORMIN HYDROCHLORIDE
     Indication: Diabetes mellitus
     Route: 048
     Dates: start: 20240721, end: 20240727
  2. ATORVASTATIN CALCIUM [Concomitant]
     Active Substance: ATORVASTATIN CALCIUM
     Indication: Hyperlipidaemia
     Route: 048
     Dates: start: 20240714, end: 20240724
  3. ENALAPRIL MALEATE\FOLIC ACID [Concomitant]
     Active Substance: ENALAPRIL MALEATE\FOLIC ACID
     Indication: Hypertension
     Route: 048
     Dates: start: 20240714, end: 20240724

REACTIONS (4)
  - Iron deficiency anaemia [Recovering/Resolving]
  - Abdominal distension [Recovering/Resolving]
  - Decreased appetite [Recovering/Resolving]
  - Vitamin B12 deficiency [Recovering/Resolving]

NARRATIVE: CASE EVENT DATE: 20240722
